FAERS Safety Report 22350145 (Version 1)
Quarter: 2023Q2

REPORT INFORMATION
  Report Type: Spontaneous
  Country: US (occurrence: US)
  Receive Date: 20230522
  Receipt Date: 20230522
  Transmission Date: 20230722
  Serious: No
  Sender: FDA-Public Use
  Company Number: US-METUCHEN-STN-2022-0099

PATIENT
  Sex: Male

DRUGS (1)
  1. AVANAFIL [Suspect]
     Active Substance: AVANAFIL
     Indication: Erectile dysfunction
     Route: 048
     Dates: start: 20220710

REACTIONS (2)
  - Drug ineffective [Unknown]
  - Penis disorder [Unknown]
